FAERS Safety Report 18712941 (Version 1)
Quarter: 2021Q1

REPORT INFORMATION
  Report Type: Spontaneous
  Country: CN (occurrence: CN)
  Receive Date: 20210107
  Receipt Date: 20210107
  Transmission Date: 20210419
  Serious: Yes (Hospitalization, Other)
  Sender: FDA-Public Use
  Company Number: CN-SA-2020SA377348

PATIENT

DRUGS (3)
  1. ALUMINIUM HYDROXIDE/MAGNESIUM TRISILICATE [Suspect]
     Active Substance: ALUMINUM HYDROXIDE\MAGNESIUM TRISILICATE
     Indication: CORONARY ARTERIAL STENT INSERTION
     Dosage: UNK
     Dates: start: 20200928
  2. PLAVIX [Suspect]
     Active Substance: CLOPIDOGREL BISULFATE
     Indication: CORONARY ARTERIAL STENT INSERTION
     Dosage: 1 DF, QD THE PATIENT SOMETIMES TOOK 2 TABLETS OF PLAVIX A DAY, AND SOMETIMES DID NOT TOOK PLAVIX THE
     Dates: start: 20200928
  3. ACETYLSALICYLIC ACID [Suspect]
     Active Substance: ASPIRIN
     Indication: CORONARY ARTERIAL STENT INSERTION
     Dosage: 1 DF, QD
     Dates: start: 20200928

REACTIONS (7)
  - Melaena [Recovering/Resolving]
  - Product dose omission issue [Unknown]
  - Wrong dose [Unknown]
  - Anaemia [Recovering/Resolving]
  - Gastrointestinal haemorrhage [Recovering/Resolving]
  - Syncope [Recovering/Resolving]
  - Intentional dose omission [Unknown]

NARRATIVE: CASE EVENT DATE: 20201123
